FAERS Safety Report 5425409-9 (Version None)
Quarter: 2007Q3

REPORT INFORMATION
  Report Type: 
  Country: None (occurrence: None)
  Receive Date: 20070824
  Receipt Date: 20070817
  Transmission Date: 20080115
  Serious: Yes (Hospitalization)
  Sender: FDA-Public Use
  Company Number: FR-BOEHRINGER INGELHEIM PHARMACEUTICALS, INC.-2006-FF-00788FF

PATIENT
  Sex: Male

DRUGS (4)
  1. ASPIRIN AND DIPYRIDAMOLE [Suspect]
     Route: 048
  2. COZAAR [Concomitant]
     Route: 048
  3. AMLODIPINE BESYLATE [Concomitant]
     Route: 048
  4. NAXY [Concomitant]
     Indication: LUNG DISORDER
     Route: 048
     Dates: start: 20060807, end: 20060811

REACTIONS (3)
  - ANXIETY [None]
  - HALLUCINATION [None]
  - NIGHTMARE [None]
